FAERS Safety Report 10315013 (Version 2)
Quarter: 2014Q3

REPORT INFORMATION
  Report Type: Report from Study
  Country: NL (occurrence: NL)
  Receive Date: 20140718
  Receipt Date: 20140718
  Transmission Date: 20150326
  Serious: Yes (Hospitalization)
  Sender: FDA-Public Use
  Company Number: NL-ABBVIE-14P-114-1196454-00

PATIENT
  Age: 79 Year
  Sex: Male
  Weight: 82 kg

DRUGS (3)
  1. TOPLEXIL [Concomitant]
     Active Substance: UNSPECIFIED INGREDIENT
     Indication: INSOMNIA
     Route: 048
  2. LUCRIN (LEUPRORELINE) [Suspect]
     Active Substance: LEUPROLIDE ACETATE
     Indication: PROSTATE CANCER
     Route: 058
     Dates: start: 20130805, end: 20140128
  3. NORMISON [Concomitant]
     Active Substance: TEMAZEPAM
     Indication: INSOMNIA
     Route: 048

REACTIONS (8)
  - Poor quality sleep [Recovered/Resolved]
  - Hot flush [Recovered/Resolved]
  - Injection site pain [Recovered/Resolved]
  - Orchidectomy [Recovered/Resolved]
  - Syncope [Recovered/Resolved]
  - Injection site reaction [Not Recovered/Not Resolved]
  - Injection site induration [Recovered/Resolved]
  - Pyrexia [Recovered/Resolved]

NARRATIVE: CASE EVENT DATE: 20130807
